FAERS Safety Report 9171363 (Version 6)
Quarter: 2014Q1

REPORT INFORMATION
  Report Type: Spontaneous
  Country: US (occurrence: US)
  Receive Date: 20130319
  Receipt Date: 20140331
  Transmission Date: 20141002
  Serious: Yes (Hospitalization, Other)
  Sender: FDA-Public Use
  Company Number: US-009507513-1303USA007558

PATIENT
  Sex: Female
  Weight: 77.55 kg

DRUGS (10)
  1. FOSAMAX [Suspect]
     Indication: OSTEOPOROSIS
     Dosage: 70 MG, QW
     Route: 048
  2. CALCIUM (UNSPECIFIED) [Concomitant]
     Indication: OSTEOPOROSIS
  3. BISOPROLOL FUMARATE (+) HYDROCHLOROTHIAZIDE [Concomitant]
     Indication: MIGRAINE
     Dosage: 5-6.25
     Dates: start: 1985
  4. SIMCOR (SIMVASTATIN) [Concomitant]
     Indication: BLOOD CHOLESTEROL INCREASED
     Dosage: 500-20
     Dates: start: 1998
  5. NASACORT [Concomitant]
     Indication: RHINITIS ALLERGIC
     Dosage: 55 MICROGRAM PER SQ METER, QD
     Route: 045
  6. PAMELOR [Concomitant]
     Indication: MIGRAINE
     Dosage: 25 MG, UNK
     Route: 048
  7. TENORMIN [Concomitant]
     Indication: MIGRAINE
     Dosage: 25 MG, QD
  8. BELLAMINE S [Concomitant]
     Indication: POSTMENOPAUSE
     Dosage: 0.6-40-0.2 MG
  9. LORATADINE [Concomitant]
     Indication: RHINITIS ALLERGIC
     Dosage: 10-20 MG, QD
  10. MUCINEX [Concomitant]
     Indication: RHINITIS ALLERGIC

REACTIONS (70)
  - Femur fracture [Unknown]
  - Intramedullary rod insertion [Unknown]
  - Intramedullary rod insertion [Unknown]
  - Internal fixation of fracture [Unknown]
  - Tibia fracture [Unknown]
  - Arthrodesis [Unknown]
  - Chest pain [Unknown]
  - Femur fracture [Unknown]
  - Meniscus injury [Unknown]
  - Chest pain [Unknown]
  - Hyperlipidaemia [Not Recovered/Not Resolved]
  - Osteopenia [Not Recovered/Not Resolved]
  - Vulval disorder [Unknown]
  - Cardiac ablation [Unknown]
  - Hysterectomy [Unknown]
  - Foot fracture [Unknown]
  - Foot fracture [Unknown]
  - Medical device removal [Unknown]
  - Spinal fracture [Unknown]
  - Stress fracture [Unknown]
  - Foot fracture [Unknown]
  - Fractured sacrum [Unknown]
  - Fractured sacrum [Unknown]
  - Compression fracture [Unknown]
  - Gait disturbance [Not Recovered/Not Resolved]
  - Impaired fasting glucose [Unknown]
  - Blood test abnormal [Unknown]
  - Spinal compression fracture [Unknown]
  - Pelvic fracture [Unknown]
  - Ear pain [Unknown]
  - Fatigue [Unknown]
  - Pyrexia [Unknown]
  - Aura [Unknown]
  - Impaired fasting glucose [Unknown]
  - Bursitis [Unknown]
  - Cystitis [Unknown]
  - Dysuria [Unknown]
  - High frequency ablation [Unknown]
  - Acute sinusitis [Unknown]
  - Bronchitis [Unknown]
  - Diverticulum [Unknown]
  - Spinal osteoarthritis [Unknown]
  - Sinus disorder [Unknown]
  - Oropharyngeal pain [Unknown]
  - Paraesthesia [Unknown]
  - Ventricular tachycardia [Unknown]
  - Ovarian failure postoperative [Unknown]
  - Carpal tunnel syndrome [Unknown]
  - Rectal haemorrhage [Unknown]
  - Haemorrhoids [Unknown]
  - Peripheral vascular disorder [Unknown]
  - Osteoarthritis [Unknown]
  - Tendon disorder [Unknown]
  - Radiculopathy [Unknown]
  - Intervertebral disc degeneration [Unknown]
  - Muscle fatigue [Unknown]
  - Intervertebral disc protrusion [Unknown]
  - Atrial fibrillation [Unknown]
  - Fibromyalgia [Unknown]
  - Back pain [Unknown]
  - Pain in extremity [Unknown]
  - Arthralgia [Unknown]
  - Gastrooesophageal reflux disease [Not Recovered/Not Resolved]
  - Headache [Unknown]
  - Arthralgia [Unknown]
  - Musculoskeletal discomfort [Unknown]
  - Arthralgia [Unknown]
  - Myalgia [Unknown]
  - Constipation [Unknown]
  - Nausea [Unknown]
